FAERS Safety Report 9136218 (Version 1)
Quarter: 2013Q1

REPORT INFORMATION
  Report Type: Spontaneous
  Country: US (occurrence: US)
  Receive Date: 20130304
  Receipt Date: 20130304
  Transmission Date: 20140127
  Serious: No
  Sender: FDA-Public Use
  Company Number: US-ABBOTT-12P-163-0974368-00

PATIENT
  Sex: Male
  Weight: 97.61 kg

DRUGS (4)
  1. ANDROGEL 1% [Suspect]
     Indication: BLOOD TESTOSTERONE DECREASED
     Dosage: TWO PUMPS DAILY
     Dates: start: 201108, end: 201201
  2. ANDROGEL 1% [Suspect]
     Dosage: FOUR PUMPS DAILY
  3. ANDROGEL 1.62% [Suspect]
     Indication: BLOOD TESTOSTERONE DECREASED
     Dosage: TWO PUMPS DAILY
     Dates: start: 201201, end: 201207
  4. MULTIVITAMINS [Concomitant]
     Indication: PRODUCT USED FOR UNKNOWN INDICATION

REACTIONS (3)
  - Deformity thorax [Not Recovered/Not Resolved]
  - Joint swelling [Recovered/Resolved]
  - Discomfort [Unknown]
